FAERS Safety Report 8211142-7 (Version None)
Quarter: 2012Q1

REPORT INFORMATION
  Report Type: 
  Country: None (occurrence: None)
  Receive Date: 20120315
  Receipt Date: 20120308
  Transmission Date: 20120608
  Serious: Yes (Death, Other)
  Sender: FDA-Public Use
  Company Number: DE-ROXANE LABORATORIES, INC.-2012-RO-00830RO

PATIENT
  Age: 42 Year
  Sex: Male

DRUGS (10)
  1. CYTARABINE [Suspect]
     Indication: CHEMOTHERAPY
     Route: 042
  2. MYCOPHENOLATE MOFETIL [Suspect]
     Indication: PROPHYLAXIS AGAINST GRAFT VERSUS HOST DISEASE
  3. METRONIDAZOLE [Suspect]
     Indication: ANTIBIOTIC PROPHYLAXIS
  4. ACYCLOVIR [Suspect]
     Indication: ANTIFUNGAL PROPHYLAXIS
  5. LEVOFLOXACIN [Suspect]
     Indication: ANTIBIOTIC PROPHYLAXIS
  6. CLOFARABINE [Suspect]
     Indication: CHEMOTHERAPY
     Route: 042
  7. FLUCONAZOLE [Suspect]
     Indication: ANTIFUNGAL PROPHYLAXIS
  8. CYCLOPHOSPHAMIDE [Suspect]
     Indication: BONE MARROW CONDITIONING REGIMEN
  9. ANTI-THYMOCYTE GLOBULIN NOS [Suspect]
     Indication: BONE MARROW CONDITIONING REGIMEN
  10. CYCLOSPORINE [Suspect]
     Indication: PROPHYLAXIS AGAINST GRAFT VERSUS HOST DISEASE

REACTIONS (6)
  - DEATH [None]
  - BLOOD BILIRUBIN INCREASED [None]
  - SKIN TOXICITY [None]
  - HEPATOTOXICITY [None]
  - STAPHYLOCOCCAL INFECTION [None]
  - MUCOSAL INFLAMMATION [None]
